FAERS Safety Report 11078943 (Version 2)
Quarter: 2016Q2

REPORT INFORMATION
  Report Type: Spontaneous
  Country: FR (occurrence: FR)
  Receive Date: 20150430
  Receipt Date: 20160414
  Transmission Date: 20160815
  Serious: Yes (Hospitalization, Other)
  Sender: FDA-Public Use
  Company Number: FR-009507513-1504FRA021384

PATIENT
  Age: 87 Year
  Sex: Male

DRUGS (7)
  1. SINEMET [Suspect]
     Active Substance: CARBIDOPA\LEVODOPA
     Dosage: STRENGTH: 100 MG /10 MG: 1 TABLET IN THE MORNING AND IN THE EVENINGUNK
     Route: 048
     Dates: start: 2015
  2. KARDEGIC [Concomitant]
     Active Substance: ASPIRIN LYSINE
  3. SERESTA [Concomitant]
     Active Substance: OXAZEPAM
     Dosage: 1 DF, IN THE EVENING
  4. ANAFRANIL [Concomitant]
     Active Substance: CLOMIPRAMINE HYDROCHLORIDE
     Dosage: UNK
     Dates: end: 20150407
  5. SINEMET [Suspect]
     Active Substance: CARBIDOPA\LEVODOPA
     Dosage: STRENGTH: 100 MG /10 MG: 1 TABLET 7H -19H
     Route: 048
     Dates: start: 20150429
  6. SINEMET [Suspect]
     Active Substance: CARBIDOPA\LEVODOPA
     Dosage: UNK
     Route: 048
     Dates: start: 20150330, end: 20150404
  7. DIAMICRON [Concomitant]
     Active Substance: GLICLAZIDE

REACTIONS (2)
  - Suicide attempt [Recovered/Resolved]
  - Condition aggravated [Recovered/Resolved]

NARRATIVE: CASE EVENT DATE: 20150402
